FAERS Safety Report 7331178-8 (Version None)
Quarter: 2011Q1

REPORT INFORMATION
  Report Type: 
  Country: None (occurrence: None)
  Receive Date: 20110228
  Receipt Date: 20110228
  Transmission Date: 20110831
  Serious: Yes (Life-Threatening, Hospitalization, Disabling)
  Sender: FDA-Public Use
  Company Number: None

PATIENT
  Sex: Male
  Weight: 81.6475 kg

DRUGS (1)
  1. ACTOS [Suspect]
     Indication: DIABETES MELLITUS
     Dosage: 45MG TO 30 THEN 15 MG DAILY
     Dates: start: 20060801, end: 20100801

REACTIONS (6)
  - CARDIAC FAILURE CONGESTIVE [None]
  - CHOLECYSTITIS INFECTIVE [None]
  - FLUID RETENTION [None]
  - WEIGHT INCREASED [None]
  - RENAL IMPAIRMENT [None]
  - BLOOD PRESSURE INCREASED [None]
